FAERS Safety Report 22191566 (Version 1)
Quarter: 2023Q2

REPORT INFORMATION
  Report Type: Other
  Country: US (occurrence: None)
  Receive Date: 20230410
  Receipt Date: 20230410
  Transmission Date: 20230722
  Serious: No
  Sender: FDA-Public Use
  Company Number: US-ROCHE-3327313

PATIENT
  Age: 49 Year
  Sex: Female

DRUGS (8)
  1. OCREVUS [Suspect]
     Active Substance: OCRELIZUMAB
     Indication: Relapsing multiple sclerosis
     Dosage: DATE OF SERVICE 17/NOV/2022 (600MG), 300MG/10 ML
     Route: 042
     Dates: start: 20180108
  2. FAMOTIDINE [Concomitant]
     Active Substance: FAMOTIDINE
  3. MAXALT [Concomitant]
     Active Substance: RIZATRIPTAN BENZOATE
  4. DEPAKOTE [Concomitant]
     Active Substance: DIVALPROEX SODIUM
  5. PROZAC [Concomitant]
     Active Substance: FLUOXETINE HYDROCHLORIDE
  6. LISINOPRIL [Concomitant]
     Active Substance: LISINOPRIL
  7. LORATADINE [Concomitant]
     Active Substance: LORATADINE
  8. AIMOVIG [Concomitant]
     Active Substance: ERENUMAB-AOOE

REACTIONS (1)
  - COVID-19 [Not Recovered/Not Resolved]

NARRATIVE: CASE EVENT DATE: 20230406
